FAERS Safety Report 4449948-2 (Version None)
Quarter: 2004Q3

REPORT INFORMATION
  Report Type: 
  Country: None (occurrence: None)
  Receive Date: 20040803
  Receipt Date: 20040521
  Transmission Date: 20050211
  Serious: Yes (Other)
  Sender: FDA-Public Use
  Company Number: 2004214820US

PATIENT
  Age: 77 Year
  Sex: Male

DRUGS (2)
  1. CAMPTOSAR [Suspect]
  2. CAPECITABINE [Concomitant]

REACTIONS (3)
  - DEEP VEIN THROMBOSIS [None]
  - INTESTINAL FUNCTIONAL DISORDER [None]
  - PULMONARY EMBOLISM [None]
